FAERS Safety Report 7243103-9 (Version None)
Quarter: 2011Q1

REPORT INFORMATION
  Report Type: 
  Country: None (occurrence: None)
  Receive Date: 20110125
  Receipt Date: 20101022
  Transmission Date: 20110831
  Serious: No
  Sender: FDA-Public Use
  Company Number: US-AMGEN-USASP2010001307

PATIENT
  Age: 79 Year
  Sex: Female
  Weight: 75.737 kg

DRUGS (23)
  1. VITAMIN B12                        /00056201/ [Concomitant]
  2. LISINOPRIL [Concomitant]
  3. ASTELIN                            /00085801/ [Concomitant]
  4. NEXIUM [Concomitant]
  5. VITAMIN A [Concomitant]
  6. IRON [Concomitant]
  7. NOVOLOG MIX 70/30 [Concomitant]
  8. PREMARIN [Concomitant]
  9. FLOMAX [Concomitant]
  10. RANEXA [Concomitant]
  11. NITROGLYCERIN [Concomitant]
  12. LANTUS [Concomitant]
  13. METANX [Concomitant]
  14. OXYGEN [Concomitant]
  15. CARDIZEM [Concomitant]
  16. TOPROL-XL [Concomitant]
  17. ZETIA [Concomitant]
  18. TRICOR [Concomitant]
  19. BETHANECHOL                        /00115902/ [Concomitant]
  20. ALIGN [Concomitant]
  21. PROLIA [Suspect]
     Indication: OSTEOPOROSIS POSTMENOPAUSAL
     Dosage: 60 MG, Q6MO
     Dates: start: 20101004
  22. RECLAST [Concomitant]
     Dosage: UNK
     Dates: start: 20090101
  23. LASIX [Concomitant]

REACTIONS (2)
  - URINARY TRACT INFECTION [None]
  - SINUSITIS [None]
